FAERS Safety Report 5866866-3 (Version None)
Quarter: 2008Q3

REPORT INFORMATION
  Report Type: 
  Country: None (occurrence: None)
  Receive Date: 20080902
  Receipt Date: 20080829
  Transmission Date: 20090109
  Serious: Yes (Hospitalization)
  Sender: FDA-Public Use
  Company Number: SE-WYE-G02080008

PATIENT
  Sex: Female

DRUGS (14)
  1. EFFEXOR [Suspect]
     Dosage: UNSPECIFIED
     Route: 048
     Dates: end: 20080722
  2. IMDUR [Suspect]
     Dosage: UNSPECIFIED
     Route: 048
     Dates: end: 20080722
  3. LYRICA [Concomitant]
  4. OMEPRAZOLE [Concomitant]
  5. ZOPICLONE [Concomitant]
  6. ATENOLOL [Concomitant]
  7. ACETAMINOPHEN [Concomitant]
  8. PROPAVAN [Concomitant]
  9. BEHEPAN [Concomitant]
  10. SOBRIL [Concomitant]
  11. PANACOD [Concomitant]
  12. LACTULOSE [Concomitant]
  13. MIRTAZAPINE [Suspect]
     Dosage: UNSPECIFIED
     Route: 048
     Dates: end: 20080722
  14. NITROMEX [Concomitant]

REACTIONS (3)
  - DIZZINESS [None]
  - FALL [None]
  - HYPOTENSION [None]
